FAERS Safety Report 20599367 (Version 1)
Quarter: 2022Q1

REPORT INFORMATION
  Report Type: Report from Study
  Country: CO (occurrence: CO)
  Receive Date: 20220315
  Receipt Date: 20220315
  Transmission Date: 20220423
  Serious: Yes (Death, Other)
  Sender: FDA-Public Use
  Company Number: CO-BRISTOL-MYERS SQUIBB COMPANY-BMS-2022-039720

PATIENT
  Age: 61 Year
  Sex: Male
  Weight: 67 kg

DRUGS (1)
  1. NIVOLUMAB [Suspect]
     Active Substance: NIVOLUMAB
     Indication: Renal cancer
     Dosage: 200 MILLIGRAM EACH 15 DAYS
     Route: 042
     Dates: start: 20220131

REACTIONS (2)
  - Death [Fatal]
  - Intentional product use issue [Unknown]
